FAERS Safety Report 7714116-5 (Version None)
Quarter: 2011Q3

REPORT INFORMATION
  Report Type: 
  Country: None (occurrence: None)
  Receive Date: 20110829
  Receipt Date: 20110816
  Transmission Date: 20111222
  Serious: Yes (Hospitalization, Other)
  Sender: FDA-Public Use
  Company Number: TR-AMGEN-TURSP2011042831

PATIENT
  Age: 61 Year
  Sex: Female

DRUGS (1)
  1. ENBREL [Suspect]
     Indication: PSORIASIS
     Dosage: 25 MG, 2X/DAY
     Route: 058
     Dates: start: 20101105, end: 20110601

REACTIONS (3)
  - MYOCARDIAL INFARCTION [None]
  - LUNG DISORDER [None]
  - NODULE [None]
